FAERS Safety Report 23719131 (Version 1)
Quarter: 2024Q2

REPORT INFORMATION
  Report Type: Spontaneous
  Country: US (occurrence: US)
  Receive Date: 20240408
  Receipt Date: 20240408
  Transmission Date: 20240716
  Serious: Yes (Hospitalization, Other)
  Sender: FDA-Public Use
  Company Number: US-NAPPMUNDI-GBR-2024-0115558

PATIENT
  Age: 19 Year
  Sex: Male

DRUGS (1)
  1. METHYLPHENIDATE HYDROCHLORIDE [Suspect]
     Active Substance: METHYLPHENIDATE HYDROCHLORIDE
     Indication: Attention deficit hyperactivity disorder
     Dosage: HAS BEEN PRESCRIBED FOR OVER TEN YEARS AND AS OF MORE RECENTLY WITH A DAILY DOSE OF 54 MG IN THE PAS
     Route: 065

REACTIONS (1)
  - Myopericarditis [Unknown]
